FAERS Safety Report 9870774 (Version 3)
Quarter: 2015Q1

REPORT INFORMATION
  Report Type: Spontaneous
  Country: US (occurrence: US)
  Receive Date: 20140205
  Receipt Date: 20150303
  Transmission Date: 20150721
  Serious: No
  Sender: FDA-Public Use
  Company Number: US-PFIZER INC-2014032737

PATIENT
  Age: 68 Year
  Sex: Female
  Weight: 66.21 kg

DRUGS (15)
  1. ALTACE [Concomitant]
     Active Substance: RAMIPRIL
     Indication: HYPERTENSION
     Dosage: 5 MG, UNK
  2. CYANOCOBALAMIN. [Concomitant]
     Active Substance: CYANOCOBALAMIN
     Dosage: 1000 MCG/ML SOLUTION 1 ML, TAKING MULTI FOR TABLET
  3. RAMIPRIL. [Concomitant]
     Active Substance: RAMIPRIL
     Dosage: 5 MG, 2X/DAY
  4. SUPER B [Concomitant]
     Dosage: 2 QD
     Route: 048
  5. D-3 [Concomitant]
     Active Substance: CHOLECALCIFEROL
     Dosage: 1 TABLET WITH FOOD ONCE A DAY
  6. LYRICA [Suspect]
     Active Substance: PREGABALIN
     Dosage: 50 MG, 1CAPSULE THREE TIMES DAY
     Route: 048
  7. CELEBREX [Suspect]
     Active Substance: CELECOXIB
     Indication: ARTHRITIS
     Dosage: 200 MG, 2X/DAY
     Route: 048
  8. SYNTHROID [Concomitant]
     Active Substance: LEVOTHYROXINE SODIUM
     Dosage: 100 ?G, 1X/DAY (ON AN EMPTY STOMACH IN THE MORNING ONCE A DAY)
  9. OSCAL [Concomitant]
     Active Substance: CALCIUM CARBONATE
     Dosage: 1 TABLET WITH FOOD ONCE A DAY
  10. REQUIP [Concomitant]
     Active Substance: ROPINIROLE HYDROCHLORIDE
     Dosage: 0.25 MG, 1X/DAY (1 TO 3 HOURS BEFORE BEDTIME ONCE A DAY)
  11. FEXOFENADINE HCL [Concomitant]
     Active Substance: FEXOFENADINE HYDROCHLORIDE
     Dosage: 180 MG, 1 TABLET 2X/DAY
  12. TEMAZEPAM. [Concomitant]
     Active Substance: TEMAZEPAM
     Dosage: 15 MG CAPSULE AT BEDTIME AS NEEDED ONCE A DAY
  13. LYRICA [Suspect]
     Active Substance: PREGABALIN
     Indication: FIBROMYALGIA
     Dosage: 100 MG (TAKING TWO CAPSULES OF 50 MG), 3X/DAY
     Route: 048
  14. CELEBREX [Suspect]
     Active Substance: CELECOXIB
     Dosage: 100 MG, 1 CAPSULE TWICE A DAY
     Route: 048
  15. ASA [Concomitant]
     Active Substance: ASPIRIN
     Dosage: 1 DF, UNK

REACTIONS (2)
  - Pain [Not Recovered/Not Resolved]
  - Circumstance or information capable of leading to medication error [Unknown]
